FAERS Safety Report 9960706 (Version 1)
Quarter: 2014Q1

REPORT INFORMATION
  Report Type: Spontaneous
  Country: US (occurrence: None)
  Receive Date: 20140127
  Receipt Date: 20140127
  Transmission Date: 20141002
  Serious: Yes (Hospitalization)
  Sender: FDA-Public Use
  Company Number: 1235811

PATIENT
  Age: 47 Year
  Sex: Female

DRUGS (1)
  1. ACTIVASE [Suspect]
     Indication: PULMONARY EMBOLISM
     Dosage: INTRAVENOUS PUSH
     Route: 042

REACTIONS (1)
  - No therapeutic response [None]
